FAERS Safety Report 18424341 (Version 1)
Quarter: 2020Q4

REPORT INFORMATION
  Report Type: Spontaneous
  Country: US (occurrence: US)
  Receive Date: 20201026
  Receipt Date: 20201026
  Transmission Date: 20210114
  Serious: Yes (Other)
  Sender: FDA-Public Use
  Company Number: US-ROCHE-2699600

PATIENT
  Age: 78 Year
  Sex: Male
  Weight: 56.75 kg

DRUGS (24)
  1. MAGNESIUM OXIDE. [Concomitant]
     Active Substance: MAGNESIUM OXIDE
     Route: 048
  2. DECADRON [Concomitant]
     Active Substance: DEXAMETHASONE
     Route: 048
  3. BUPROPION. [Concomitant]
     Active Substance: BUPROPION
     Route: 048
     Dates: end: 20200820
  4. GLIMEPIRIDE. [Concomitant]
     Active Substance: GLIMEPIRIDE
     Route: 048
     Dates: start: 202009
  5. ACTEMRA [Suspect]
     Active Substance: TOCILIZUMAB
  6. LEVOTHYROXINE. [Concomitant]
     Active Substance: LEVOTHYROXINE
     Route: 048
  7. PREDNISONE. [Concomitant]
     Active Substance: PREDNISONE
     Route: 048
  8. METOPROLOL SUCCINATE ER [Concomitant]
     Active Substance: METOPROLOL SUCCINATE
     Route: 048
     Dates: end: 20200820
  9. PAXIL [Concomitant]
     Active Substance: PAROXETINE HYDROCHLORIDE
     Route: 048
     Dates: end: 20200827
  10. PANTOPRAZOLE [Concomitant]
     Active Substance: PANTOPRAZOLE
     Route: 048
  11. DECADRON [Concomitant]
     Active Substance: DEXAMETHASONE
     Route: 048
  12. NITROGLYCERIN. [Concomitant]
     Active Substance: NITROGLYCERIN
     Route: 048
  13. CELEBREX [Concomitant]
     Active Substance: CELECOXIB
     Route: 048
  14. LAMICTAL [Concomitant]
     Active Substance: LAMOTRIGINE
     Route: 048
  15. DECADRON [Concomitant]
     Active Substance: DEXAMETHASONE
     Route: 048
  16. VITAMIN D3 [Concomitant]
     Active Substance: CHOLECALCIFEROL
     Dosage: 10000 UNITS
     Route: 048
  17. ACTEMRA [Suspect]
     Active Substance: TOCILIZUMAB
     Indication: RHEUMATOID ARTHRITIS
     Route: 058
     Dates: start: 20200703
  18. VENLAFAXINE [Concomitant]
     Active Substance: VENLAFAXINE HYDROCHLORIDE
     Route: 048
  19. ZYRTEC (UNITED STATES) [Concomitant]
     Route: 048
  20. PROLIA [Concomitant]
     Active Substance: DENOSUMAB
  21. PLAVIX [Concomitant]
     Active Substance: CLOPIDOGREL BISULFATE
     Route: 048
  22. METFORMIN [Concomitant]
     Active Substance: METFORMIN HYDROCHLORIDE
     Route: 048
     Dates: end: 20200820
  23. FOLIC ACID. [Concomitant]
     Active Substance: FOLIC ACID
     Route: 048
  24. ASPIRIN. [Concomitant]
     Active Substance: ASPIRIN
     Route: 048

REACTIONS (3)
  - Product quality issue [Unknown]
  - Bursitis infective [Recovered/Resolved]
  - Product dose omission issue [Unknown]

NARRATIVE: CASE EVENT DATE: 202009
